FAERS Safety Report 16914432 (Version 3)
Quarter: 2019Q4

REPORT INFORMATION
  Report Type: Spontaneous
  Country: DE (occurrence: DE)
  Receive Date: 20191014
  Receipt Date: 20191105
  Transmission Date: 20200122
  Serious: Yes (Life-Threatening, Other)
  Sender: FDA-Public Use
  Company Number: DE-SA-2019SA281647

PATIENT
  Age: 75 Year
  Sex: Female
  Weight: 85 kg

DRUGS (1)
  1. CLEXANE [Suspect]
     Active Substance: ENOXAPARIN SODIUM
     Indication: THROMBOSIS PROPHYLAXIS
     Dosage: 0.4 ML
     Route: 058
     Dates: start: 20190902

REACTIONS (5)
  - Drug ineffective [Unknown]
  - Pulmonary embolism [Unknown]
  - Dyspnoea [Unknown]
  - Oxygen saturation decreased [Unknown]
  - Fibrin D dimer increased [Unknown]

NARRATIVE: CASE EVENT DATE: 20190918
